FAERS Safety Report 17282553 (Version 2)
Quarter: 2020Q1

REPORT INFORMATION
  Report Type: Spontaneous
  Country: US (occurrence: US)
  Receive Date: 20200117
  Receipt Date: 20200303
  Transmission Date: 20200409
  Serious: No
  Sender: FDA-Public Use
  Company Number: US-JNJFOC-20200121561

PATIENT
  Sex: Female
  Weight: 82 kg

DRUGS (2)
  1. SIMPONI ARIA [Suspect]
     Active Substance: GOLIMUMAB
     Indication: RHEUMATOID ARTHRITIS
     Dosage: 162.5 MG
     Route: 042
     Dates: start: 20191216, end: 20191216
  2. SIMPONI ARIA [Suspect]
     Active Substance: GOLIMUMAB
     Route: 042

REACTIONS (1)
  - Inappropriate schedule of product administration [Unknown]
